FAERS Safety Report 9454813 (Version 1)
Quarter: 2013Q3

REPORT INFORMATION
  Report Type: Spontaneous
  Country: US (occurrence: US)
  Receive Date: 20130812
  Receipt Date: 20130812
  Transmission Date: 20140515
  Serious: Yes (Death)
  Sender: FDA-Public Use
  Company Number: US-009507513-1308USA003996

PATIENT
  Sex: Female

DRUGS (2)
  1. REMERON [Suspect]
     Dosage: UNK
     Route: 048
     Dates: end: 20130722
  2. PRISTIQ [Suspect]
     Dosage: UNK
     Dates: start: 201007

REACTIONS (1)
  - Completed suicide [Fatal]
